FAERS Safety Report 8009969-X (Version None)
Quarter: 2011Q4

REPORT INFORMATION
  Report Type: 
  Country: None (occurrence: None)
  Receive Date: 20111228
  Receipt Date: 20111222
  Transmission Date: 20120403
  Serious: Yes (Hospitalization)
  Sender: FDA-Public Use
  Company Number: PHHY2011KR110389

PATIENT
  Sex: Male
  Weight: 78.3 kg

DRUGS (2)
  1. CHEMOTHERAPEUTICS,OTHER [Concomitant]
  2. EXJADE [Suspect]
     Indication: IRON OVERLOAD
     Dosage: 1500 MG, PER DAY
     Route: 048
     Dates: start: 20101201

REACTIONS (4)
  - PNEUMONIA [None]
  - ASTHENIA [None]
  - FEBRILE NEUTROPENIA [None]
  - MENINGITIS VIRAL [None]
